FAERS Safety Report 17224443 (Version 1)
Quarter: 2019Q4

REPORT INFORMATION
  Report Type: Spontaneous
  Country: US (occurrence: US)
  Receive Date: 20191209
  Receipt Date: 20191209
  Transmission Date: 20200122
  Serious: Yes (Hospitalization)
  Sender: FDA-Public Use
  Company Number: None

PATIENT
  Age: 66 Year
  Sex: Male
  Weight: 78 kg

DRUGS (1)
  1. IBUPROFEN (IBUPROFEN 800MG TAB) [Suspect]
     Active Substance: IBUPROFEN
     Indication: PAIN
     Route: 048
     Dates: start: 20180620, end: 20190417

REACTIONS (3)
  - Gastritis [None]
  - Gastric haemorrhage [None]
  - Diverticulum [None]

NARRATIVE: CASE EVENT DATE: 20190318
